FAERS Safety Report 4421701-5 (Version None)
Quarter: 2004Q3

REPORT INFORMATION
  Report Type: 
  Country: None (occurrence: None)
  Receive Date: 20040806
  Receipt Date: 20040723
  Transmission Date: 20050211
  Serious: Yes (Hospitalization)
  Sender: FDA-Public Use
  Company Number: 201877

PATIENT
  Age: 54 Year
  Sex: Female
  Weight: 113.3993 kg

DRUGS (2)
  1. AVONEX [Suspect]
     Indication: MULTIPLE SCLEROSIS
     Dosage: 30 MCG QW IM
     Route: 030
     Dates: start: 19980101, end: 20030801
  2. AVONEX [Suspect]
     Indication: MULTIPLE SCLEROSIS
     Dosage: 30 MCG QW IM
     Route: 030
     Dates: start: 20030801

REACTIONS (11)
  - ASTHMA [None]
  - BLINDNESS TRANSIENT [None]
  - EXOSTOSIS [None]
  - EYE DISORDER [None]
  - FATIGUE [None]
  - HIP DEFORMITY [None]
  - INFLUENZA LIKE ILLNESS [None]
  - INJECTION SITE PAIN [None]
  - MYALGIA [None]
  - PNEUMONIA [None]
  - SLEEP APNOEA SYNDROME [None]
